FAERS Safety Report 20709737 (Version 1)
Quarter: 2022Q2

REPORT INFORMATION
  Report Type: Spontaneous
  Country: FR (occurrence: FR)
  Receive Date: 20220414
  Receipt Date: 20220414
  Transmission Date: 20220720
  Serious: Yes (Other)
  Sender: FDA-Public Use
  Company Number: None

PATIENT
  Age: 31 Year
  Sex: Female
  Weight: 65 kg

DRUGS (1)
  1. DYMISTA [Suspect]
     Active Substance: AZELASTINE HYDROCHLORIDE\FLUTICASONE PROPIONATE
     Indication: Otosalpingitis
     Dosage: 2 DOSAGE FORM, QD 91 INSTILLATION IN THE MORNING AND 1 IN THE EVENING, IN EACH NOSTRIL_
     Route: 045
     Dates: start: 20220302, end: 20220308

REACTIONS (3)
  - Swollen tongue [Recovering/Resolving]
  - Throat irritation [Recovering/Resolving]
  - Odynophagia [Recovering/Resolving]

NARRATIVE: CASE EVENT DATE: 20220306
